FAERS Safety Report 9797541 (Version 1)
Quarter: 2014Q1

REPORT INFORMATION
  Report Type: Spontaneous
  Country: US (occurrence: None)
  Receive Date: 20140102
  Receipt Date: 20140102
  Transmission Date: 20141002
  Serious: No
  Sender: FDA-Public Use
  Company Number: None

PATIENT
  Age: 18 Year
  Sex: Female
  Weight: 77.57 kg

DRUGS (1)
  1. LAMICTAL 200MG [Suspect]
     Route: 048
     Dates: start: 201310, end: 201312

REACTIONS (2)
  - Agitation [None]
  - Anger [None]
